FAERS Safety Report 16416032 (Version 2)
Quarter: 2019Q3

REPORT INFORMATION
  Report Type: Spontaneous
  Country: US (occurrence: US)
  Receive Date: 20190611
  Receipt Date: 20190722
  Transmission Date: 20191004
  Serious: Yes (Other)
  Sender: FDA-Public Use
  Company Number: US-JNJFOC-20190543335

PATIENT
  Age: 58 Year
  Sex: Female
  Weight: 79 kg

DRUGS (6)
  1. FENTANYL. [Suspect]
     Active Substance: FENTANYL
     Indication: PAIN
     Route: 062
     Dates: end: 2018
  2. FENTANYL. [Suspect]
     Active Substance: FENTANYL
     Route: 062
     Dates: end: 2018
  3. FENTANYL. [Suspect]
     Active Substance: FENTANYL
     Route: 062
  4. AMLODIPINE [Concomitant]
     Active Substance: AMLODIPINE BESYLATE
     Indication: HYPERTENSION
     Route: 065
  5. LISINOPRIL. [Concomitant]
     Active Substance: LISINOPRIL
     Indication: HYPERTENSION
     Route: 065
  6. FENTANYL. [Suspect]
     Active Substance: FENTANYL
     Route: 062

REACTIONS (6)
  - Therapeutic response decreased [Not Recovered/Not Resolved]
  - Body height decreased [Unknown]
  - Withdrawal syndrome [Not Recovered/Not Resolved]
  - Inappropriate schedule of product administration [Not Recovered/Not Resolved]
  - Macular fibrosis [Unknown]
  - Product dose omission [Not Recovered/Not Resolved]

NARRATIVE: CASE EVENT DATE: 201904
